FAERS Safety Report 6370423-2 (Version None)
Quarter: 2009Q3

REPORT INFORMATION
  Report Type: 
  Country: None (occurrence: None)
  Receive Date: 20090921
  Receipt Date: 20090921
  Transmission Date: 20100115
  Serious: Yes (Hospitalization)
  Sender: FDA-Public Use
  Company Number: None

PATIENT
  Sex: Female
  Weight: 66.2 kg

DRUGS (5)
  1. DAUNORUBICIN HCL [Suspect]
     Dosage: 43.5 MG
  2. METHYLPREDNISOLONE 4MG TAB [Suspect]
     Dosage: 400 MG
  3. PEG-L-ASPARAGINASE (K-H) [Suspect]
     Dosage: 4350 IU
  4. VINCRISTINE SULFATE [Suspect]
     Dosage: 2 MG
  5. CYTARABINE [Suspect]
     Dosage: 70 MG

REACTIONS (4)
  - ABDOMINAL PAIN UPPER [None]
  - NAUSEA [None]
  - PAIN [None]
  - VOMITING [None]
